FAERS Safety Report 7060227-X (Version None)
Quarter: 2010Q4

REPORT INFORMATION
  Report Type: 
  Country: None (occurrence: None)
  Receive Date: 20101025
  Receipt Date: 20101013
  Transmission Date: 20110411
  Serious: Yes (Other)
  Sender: FDA-Public Use
  Company Number: JP-MERCK-1010USA00248

PATIENT
  Age: 25 Year
  Sex: Female

DRUGS (3)
  1. DECADRON [Suspect]
     Route: 042
  2. GABEXATE MESYLATE [Concomitant]
     Route: 042
  3. MAGNESIUM SULFATE [Concomitant]
     Route: 065

REACTIONS (2)
  - DRUG EXPOSURE DURING PREGNANCY [None]
  - HEPATITIS ACUTE [None]
